FAERS Safety Report 19078260 (Version 1)
Quarter: 2021Q1

REPORT INFORMATION
  Report Type: Spontaneous
  Country: US (occurrence: US)
  Receive Date: 20210330
  Receipt Date: 20210330
  Transmission Date: 20210420
  Serious: Yes (Disabling)
  Sender: FDA-Public Use
  Company Number: None

PATIENT
  Age: 70 Year
  Sex: Female
  Weight: 72 kg

DRUGS (2)
  1. IBUPROFEN. [Concomitant]
     Active Substance: IBUPROFEN
  2. CLOSYS NON?IRRITATING RINSE [Suspect]
     Active Substance: CHLORINE DIOXIDE
     Indication: DENTAL PLAQUE
     Dosage: ?          QUANTITY:1 CAPFUL;OTHER ROUTE:ORAL RINSE?
     Dates: start: 20210310, end: 20210313

REACTIONS (6)
  - Oral discomfort [None]
  - Stomatitis [None]
  - Hypoaesthesia oral [None]
  - Glossitis [None]
  - Tongue dry [None]
  - Dry mouth [None]

NARRATIVE: CASE EVENT DATE: 20210311
